FAERS Safety Report 8869960 (Version 5)
Quarter: 2019Q2

REPORT INFORMATION
  Report Type: Spontaneous
  Country: US (occurrence: US)
  Receive Date: 20121026
  Receipt Date: 20190525
  Transmission Date: 20190711
  Serious: Yes (Other)
  Sender: FDA-Public Use
  Company Number: US-AMGEN-USASP2012044016

PATIENT
  Age: 57 Year
  Sex: Female
  Weight: 58.05 kg

DRUGS (2)
  1. DICLOFENAC EPOLAMINE [Concomitant]
     Active Substance: DICLOFENAC EPOLAMINE
     Dosage: UNK UNK, BID (1 PATCH TO AFFECTED AREA)
     Route: 061
     Dates: start: 20190501
  2. ENBREL [Suspect]
     Active Substance: ETANERCEPT
     Indication: RHEUMATOID ARTHRITIS
     Dosage: 50 MILLIGRAM, QWK
     Route: 065
     Dates: start: 20000223

REACTIONS (23)
  - Drug hypersensitivity [Unknown]
  - Rotator cuff repair [Unknown]
  - Foot operation [Unknown]
  - Heart rate increased [Unknown]
  - Joint dislocation [Unknown]
  - Fatigue [Unknown]
  - Fall [Unknown]
  - Upper respiratory tract infection [Unknown]
  - Therapeutic product effect incomplete [Unknown]
  - Chromaturia [Unknown]
  - Medical device removal [Unknown]
  - Constipation [Unknown]
  - Knee operation [Unknown]
  - Limb operation [Unknown]
  - Diarrhoea [Unknown]
  - Injection site bruising [Unknown]
  - Muscular weakness [Unknown]
  - Injection site mass [Unknown]
  - Dehydration [Unknown]
  - Device issue [Unknown]
  - Headache [Unknown]
  - Musculoskeletal pain [Unknown]
  - Rash [Unknown]

NARRATIVE: CASE EVENT DATE: 2012
